FAERS Safety Report 8206163-4 (Version None)
Quarter: 2012Q1

REPORT INFORMATION
  Report Type: 
  Country: None (occurrence: None)
  Receive Date: 20120313
  Receipt Date: 20120305
  Transmission Date: 20120608
  Serious: Yes (Hospitalization, Other)
  Sender: FDA-Public Use
  Company Number: US-CELGENEUS-163-21880-12012787

PATIENT
  Sex: Male

DRUGS (9)
  1. DEXAMETHASONE [Concomitant]
     Route: 065
  2. OXYCODONE HCL [Concomitant]
     Indication: BONE PAIN
     Route: 065
  3. PERCOCET [Concomitant]
     Indication: PAIN
     Route: 065
  4. ASPIRIN [Concomitant]
     Route: 065
  5. LIPITOR [Concomitant]
     Route: 065
  6. REVLIMID [Suspect]
     Indication: MULTIPLE MYELOMA
     Dosage: 15 MILLIGRAM
     Route: 048
     Dates: start: 20100818, end: 20110101
  7. ATENOLOL [Concomitant]
     Indication: HYPERTENSION
     Route: 065
  8. FOSINOPRIL SODIUM [Concomitant]
     Indication: HYPERTENSION
     Route: 065
  9. REVLIMID [Suspect]
     Dosage: 10 MILLIGRAM
     Route: 048
     Dates: start: 20110401

REACTIONS (3)
  - DIABETES MELLITUS [None]
  - STAPHYLOCOCCAL INFECTION [None]
  - PANCREATITIS [None]
